FAERS Safety Report 15353162 (Version 1)
Quarter: 2018Q3

REPORT INFORMATION
  Report Type: Report from Study
  Country: US (occurrence: US)
  Receive Date: 20180905
  Receipt Date: 20180905
  Transmission Date: 20181010
  Serious: Yes (Hospitalization, Other)
  Sender: FDA-Public Use
  Company Number: US-ARIAD-2014US003739

PATIENT
  Age: 52 Year
  Sex: Male

DRUGS (3)
  1. PONATINIB [Suspect]
     Active Substance: PONATINIB
     Indication: CHRONIC MYELOID LEUKAEMIA
     Dosage: 45 MG, QD
     Route: 048
     Dates: start: 20140421
  2. PONATINIB [Suspect]
     Active Substance: PONATINIB
     Dosage: 30 MG, QD
     Route: 048
     Dates: start: 20150205
  3. PONATINIB [Suspect]
     Active Substance: PONATINIB
     Dosage: 45 MG, QD
     Route: 048

REACTIONS (22)
  - Blood creatinine abnormal [Unknown]
  - Blood glucose increased [Unknown]
  - Graft versus host disease in gastrointestinal tract [Unknown]
  - Seborrhoeic keratosis [Unknown]
  - Blood chloride abnormal [Unknown]
  - Creatinine renal clearance abnormal [Unknown]
  - Viral infection [Unknown]
  - Rash [Unknown]
  - Acute kidney injury [Unknown]
  - Enterobacter bacteraemia [Unknown]
  - Blast crisis in myelogenous leukaemia [Unknown]
  - Platelet count abnormal [Unknown]
  - Nausea [Unknown]
  - Papule [Unknown]
  - Transplant [Not Recovered/Not Resolved]
  - Constipation [Unknown]
  - Immunodeficiency [Unknown]
  - Carbon dioxide abnormal [Unknown]
  - Blood urea abnormal [Unknown]
  - Glomerular filtration rate abnormal [Unknown]
  - White blood cell count decreased [Unknown]
  - Red blood cell count abnormal [Unknown]

NARRATIVE: CASE EVENT DATE: 20140912
